FAERS Safety Report 5490880-3 (Version None)
Quarter: 2007Q4

REPORT INFORMATION
  Report Type: 
  Country: None (occurrence: None)
  Receive Date: 20071019
  Receipt Date: 20071011
  Transmission Date: 20080405
  Serious: Yes (Death, Hospitalization, Other)
  Sender: FDA-Public Use
  Company Number: US-AVENTIS-200716475US

PATIENT
  Sex: Female
  Weight: 58.18 kg

DRUGS (7)
  1. TAXOTERE [Suspect]
     Route: 042
     Dates: start: 20070821, end: 20070821
  2. ADRIAMYCIN PFS [Suspect]
     Route: 042
     Dates: start: 20070821, end: 20070821
  3. CYTOXAN [Suspect]
     Route: 042
     Dates: start: 20070821, end: 20070821
  4. NEULASTA [Concomitant]
     Dates: start: 20070821, end: 20070821
  5. NORVASC                            /00972401/ [Concomitant]
  6. LIPITOR [Concomitant]
  7. OXYCODONE HCL [Concomitant]
     Indication: MYALGIA

REACTIONS (13)
  - CHILLS [None]
  - COLITIS ISCHAEMIC [None]
  - DIARRHOEA [None]
  - DISSEMINATED INTRAVASCULAR COAGULATION [None]
  - HYPOTENSION [None]
  - NAUSEA [None]
  - NEUTROPENIA [None]
  - PAIN [None]
  - PLATELET COUNT DECREASED [None]
  - PYREXIA [None]
  - SEPSIS [None]
  - VOMITING [None]
  - WHITE BLOOD CELL COUNT DECREASED [None]
